FAERS Safety Report 9862202 (Version 2)
Quarter: 2014Q1

REPORT INFORMATION
  Report Type: Spontaneous
  Country: IN (occurrence: IN)
  Receive Date: 20140203
  Receipt Date: 20140210
  Transmission Date: 20141002
  Serious: Yes (Other)
  Sender: FDA-Public Use
  Company Number: IN-SA-2014SA011211

PATIENT
  Age: 20 Year
  Sex: Male

DRUGS (1)
  1. APIDRA [Suspect]
     Indication: TYPE 2 DIABETES MELLITUS
     Route: 058

REACTIONS (1)
  - Injection site abscess [Recovered/Resolved]
